FAERS Safety Report 8544231-8 (Version None)
Quarter: 2012Q3

REPORT INFORMATION
  Report Type: 
  Country: None (occurrence: None)
  Receive Date: 20120727
  Receipt Date: 20120723
  Transmission Date: 20120928
  Serious: Yes (Disabling)
  Sender: FDA-Public Use
  Company Number: GB-PFIZER INC-2012059247

PATIENT
  Age: 56 Year
  Sex: Female

DRUGS (2)
  1. AZITHROMYCIN [Suspect]
     Indication: PROPHYLAXIS
     Dosage: 250 MG, 2X/DAY
     Route: 048
     Dates: end: 20120216
  2. GENTAMICIN [Suspect]
     Dosage: UNK

REACTIONS (2)
  - OTOTOXICITY [None]
  - DEAFNESS UNILATERAL [None]
